FAERS Safety Report 7902656 (Version 5)
Quarter: 2013Q2

REPORT INFORMATION
  Report Type: Spontaneous
  Country: FI (occurrence: FI)
  Receive Date: 20110418
  Receipt Date: 20130603
  Transmission Date: 20140414
  Serious: Yes (Life-Threatening, Hospitalization, Other)
  Sender: FDA-Public Use
  Company Number: FI-BRISTOL-MYERS SQUIBB COMPANY-15672975

PATIENT
  Age: 15 Year
  Sex: Male

DRUGS (4)
  1. ABILIFY TABS 20 MG [Suspect]
     Indication: PSYCHOTIC DISORDER
     Dosage: 2.5MG MID FEB11;5MG/WK;INC20MG/D14MAR11(FOR3WK);5MG 18FEB,FROM 15MAR11(10MG/2D),02MAR 15MG;INC 15MAR
     Route: 048
     Dates: start: 20110216, end: 20110407
  2. ZYPREXA [Suspect]
  3. BURANA [Concomitant]
     Indication: INFLUENZA
     Dates: start: 20110404, end: 20110407
  4. BURANA [Concomitant]
     Indication: PYREXIA
     Dates: start: 20110404, end: 20110407

REACTIONS (5)
  - Neuroleptic malignant syndrome [Recovered/Resolved]
  - Posterior reversible encephalopathy syndrome [Recovered/Resolved]
  - Loss of consciousness [Recovered/Resolved]
  - Pollakiuria [Unknown]
  - Urinary hesitation [Unknown]
